FAERS Safety Report 10466997 (Version 2)
Quarter: 2014Q4

REPORT INFORMATION
  Report Type: Spontaneous
  Country: FR (occurrence: FR)
  Receive Date: 20140922
  Receipt Date: 20141104
  Transmission Date: 20150528
  Serious: Yes (Life-Threatening)
  Sender: FDA-Public Use
  Company Number: FR-TEVA-509127ISR

PATIENT
  Age: 18 Year
  Sex: Female

DRUGS (3)
  1. LEELOO 0.1MG/0.02MG [Suspect]
     Active Substance: ETHINYL ESTRADIOL\LEVONORGESTREL
     Indication: ORAL CONTRACEPTION
     Route: 048
     Dates: start: 20130521, end: 20140902
  2. IBUPROFEN. [Concomitant]
     Active Substance: IBUPROFEN
     Dosage: PUNCTUALLY
  3. PARACETAMOL [Concomitant]
     Active Substance: ACETAMINOPHEN
     Dosage: PUNCTUALLY

REACTIONS (3)
  - Headache [Recovered/Resolved]
  - Cerebral venous thrombosis [Recovered/Resolved]
  - Paraesthesia [Recovered/Resolved]

NARRATIVE: CASE EVENT DATE: 20140818
